FAERS Safety Report 9925352 (Version 2)
Quarter: 2014Q1

REPORT INFORMATION
  Report Type: Spontaneous
  Country: US (occurrence: US)
  Receive Date: 20140226
  Receipt Date: 20140313
  Transmission Date: 20141002
  Serious: Yes (Other)
  Sender: FDA-Public Use
  Company Number: US-JNJFOC-20140211400

PATIENT
  Age: 53 Year
  Sex: Female
  Weight: 87.09 kg

DRUGS (9)
  1. INVOKANA [Suspect]
     Indication: DIABETES MELLITUS
     Route: 048
     Dates: end: 201401
  2. INVOKANA [Suspect]
     Indication: DIABETES MELLITUS
     Route: 048
     Dates: start: 201401, end: 20140216
  3. AMBIEN [Concomitant]
     Indication: SLEEP DISORDER
  4. AMARYL [Concomitant]
     Indication: DIABETES MELLITUS
  5. GLUCOPHAGE [Concomitant]
     Indication: DIABETES MELLITUS
  6. TRICOR [Concomitant]
     Indication: OBESITY
  7. SINGULAIR [Concomitant]
     Indication: MULTIPLE ALLERGIES
  8. LEVEMIR [Concomitant]
     Indication: DIABETES MELLITUS
  9. ALLEGRA [Concomitant]
     Indication: MULTIPLE ALLERGIES

REACTIONS (10)
  - Atrial fibrillation [Not Recovered/Not Resolved]
  - Dehydration [Not Recovered/Not Resolved]
  - Heart rate increased [Unknown]
  - Incorrect dose administered [Recovered/Resolved]
  - Anxiety [Not Recovered/Not Resolved]
  - Nervousness [Not Recovered/Not Resolved]
  - Feeling jittery [Not Recovered/Not Resolved]
  - Hot flush [Not Recovered/Not Resolved]
  - Somnolence [Not Recovered/Not Resolved]
  - Off label use [Unknown]
